FAERS Safety Report 8123214-6 (Version None)
Quarter: 2012Q1

REPORT INFORMATION
  Report Type: 
  Country: None (occurrence: None)
  Receive Date: 20120208
  Receipt Date: 20120203
  Transmission Date: 20120608
  Serious: Yes (Hospitalization)
  Sender: FDA-Public Use
  Company Number: PHHO2011US021791

PATIENT
  Sex: Male
  Weight: 76.6 kg

DRUGS (11)
  1. SOM230 [Suspect]
     Indication: GASTROINTESTINAL CARCINOMA
     Route: 030
  2. IRINOTECAN HCL [Suspect]
     Indication: GASTROINTESTINAL CARCINOMA
     Dosage: 353 MG, D1, D15 Q28 DAYS
     Route: 042
     Dates: start: 20111228, end: 20111230
  3. FLUOROURACIL [Suspect]
     Dosage: 470 MG, CIVI, D1, D15 Q28 DAYS
     Dates: start: 20120201, end: 20120203
  4. PROCHLORPERAZINE [Concomitant]
     Dosage: 10 MG, QD
  5. MORPHINE [Concomitant]
     Dosage: 15 MG, Q6H, PRN
     Route: 048
  6. OXYCODONE HCL [Concomitant]
     Indication: PAIN
     Dosage: 5 MG, PRN
     Route: 048
  7. LEUCOVORIN CALCIUM [Suspect]
     Indication: GASTROINTESTINAL CARCINOMA
     Dosage: 784 MG, D1, D15 Q28 DAYS
     Route: 042
     Dates: start: 20111228
  8. FLUOROURACIL [Suspect]
     Indication: GASTROINTESTINAL CARCINOMA
     Dosage: 784 MG, D1, D15 Q28 DAYS
     Route: 042
     Dates: start: 20120201
  9. HYDROCORTISONE [Concomitant]
     Dosage: 1 APPLICATION TID
     Route: 061
  10. WELLBUTRIN [Concomitant]
     Dosage: 150 MG, QD 3 TABLETS
     Route: 048
  11. FENTANYL CITRATE [Concomitant]
     Dosage: 75 UG, Q72H

REACTIONS (2)
  - NAUSEA [None]
  - VOMITING [None]
